FAERS Safety Report 11942989 (Version 1)
Quarter: 2016Q1

REPORT INFORMATION
  Report Type: Spontaneous
  Country: US (occurrence: US)
  Receive Date: 20160125
  Receipt Date: 20160125
  Transmission Date: 20160526
  Serious: No
  Sender: FDA-Public Use
  Company Number: US-UNITED THERAPEUTICS-UNT-2015-009943

PATIENT
  Sex: Female

DRUGS (2)
  1. REMODULIN [Suspect]
     Active Substance: TREPROSTINIL
     Dosage: 0.01125 ?G/KG/MIN, EVERY 1.5 DAYS
     Dates: start: 201503
  2. REMODULIN [Suspect]
     Active Substance: TREPROSTINIL
     Indication: PULMONARY ARTERIAL HYPERTENSION
     Dosage: 0.01125 ?G/KG/MIN, CONTINUING
     Route: 058
     Dates: start: 20150324

REACTIONS (6)
  - Thrombosis in device [Recovered/Resolved]
  - Infusion site infection [Unknown]
  - Infusion site pain [Unknown]
  - Migraine [Unknown]
  - Diarrhoea [Unknown]
  - Oedema [Unknown]

NARRATIVE: CASE EVENT DATE: 20150806
